FAERS Safety Report 24727384 (Version 1)
Quarter: 2024Q4

REPORT INFORMATION
  Report Type: Spontaneous
  Country: US (occurrence: US)
  Receive Date: 20241212
  Receipt Date: 20241212
  Transmission Date: 20250115
  Serious: Yes (Hospitalization, Other)
  Sender: ABBVIE
  Company Number: US-ABBVIE-6040534

PATIENT
  Age: 17 Year
  Sex: Male

DRUGS (1)
  1. INFED [Suspect]
     Active Substance: IRON DEXTRAN
     Indication: Iron deficiency anaemia
     Dosage: FORM STRENGTH: 50 MG
     Route: 042
     Dates: start: 2013, end: 2013

REACTIONS (3)
  - Throat tightness [Recovered/Resolved]
  - Flushing [Recovered/Resolved]
  - Anaphylactic reaction [Recovered/Resolved]

NARRATIVE: CASE EVENT DATE: 20130101
